FAERS Safety Report 15809756 (Version 1)
Quarter: 2019Q1

REPORT INFORMATION
  Report Type: Spontaneous
  Country: US (occurrence: US)
  Receive Date: 20190111
  Receipt Date: 20190111
  Transmission Date: 20190417
  Serious: No
  Sender: FDA-Public Use
  Company Number: US-ROCHE-2057050

PATIENT
  Age: 64 Year
  Sex: Male

DRUGS (5)
  1. DEXAMETHASONE. [Concomitant]
     Active Substance: DEXAMETHASONE
     Dosage: TREATMENT OF LOCALIZED URTICARIA DURING FIRST RITUXIMAB INFUSION
     Route: 065
  2. RITUXIMAB. [Suspect]
     Active Substance: RITUXIMAB
     Indication: PSEUDOLYMPHOMA
     Route: 042
  3. DEXAMETHASONE. [Concomitant]
     Active Substance: DEXAMETHASONE
     Dosage: PRE-MEDICATION WITH EACH RITUXIMAB INFUSION FROM SECOND INFUSION ONWARDS
     Route: 065
  4. ACETAMINOPHEN. [Concomitant]
     Active Substance: ACETAMINOPHEN
     Dosage: PRE-MEDICATION WITH EACH RITUXIMAB INFUSION
     Route: 065
  5. DIPHENHYDRAMINE. [Concomitant]
     Active Substance: DIPHENHYDRAMINE
     Dosage: PRE-MEDICATION WITH EACH RITUXIMAB INFUSION
     Route: 042

REACTIONS (1)
  - Urticaria [Recovered/Resolved]
